FAERS Safety Report 5234557-8 (Version None)
Quarter: 2007Q1

REPORT INFORMATION
  Report Type: 
  Country: None (occurrence: None)
  Receive Date: 20070209
  Receipt Date: 20070205
  Transmission Date: 20070707
  Serious: Yes (Death)
  Sender: FDA-Public Use
  Company Number: PHHO2007CL00479

PATIENT
  Age: 45 Year
  Sex: Male

DRUGS (7)
  1. GLEEVEC [Suspect]
     Indication: CHRONIC MYELOID LEUKAEMIA
     Dosage: 400 MG, QD
     Route: 048
     Dates: start: 20050301, end: 20061227
  2. PARACETAMOL [Concomitant]
  3. CODEINE [Concomitant]
  4. ALLOPURINOL SODIUM [Concomitant]
  5. CALCIUM CARBONATE [Concomitant]
  6. SODIUM BICARBONATE [Concomitant]
  7. FUROSEMIDE [Concomitant]

REACTIONS (2)
  - MALIGNANT NEOPLASM PROGRESSION [None]
  - RENAL FAILURE ACUTE [None]
